FAERS Safety Report 4580404-7 (Version None)
Quarter: 2005Q1

REPORT INFORMATION
  Report Type: 
  Country: None (occurrence: None)
  Receive Date: 20050214
  Receipt Date: 20040115
  Transmission Date: 20050727
  Serious: No
  Sender: FDA-Public Use
  Company Number: US-GLAXOSMITHKLINE-A0493561A

PATIENT
  Age: 38 Year
  Sex: Female
  Weight: 77.3 kg

DRUGS (2)
  1. LAMICTAL [Suspect]
     Indication: ILL-DEFINED DISORDER
     Dosage: 100MG PER DAY
     Route: 048
     Dates: start: 20031205, end: 20040111
  2. ACIDOPHILIS [Concomitant]

REACTIONS (2)
  - MOUTH ULCERATION [None]
  - RASH GENERALISED [None]
